FAERS Safety Report 13354161 (Version 1)
Quarter: 2017Q1

REPORT INFORMATION
  Report Type: Spontaneous
  Country: US (occurrence: US)
  Receive Date: 20170320
  Receipt Date: 20170320
  Transmission Date: 20170429
  Serious: Yes (Other)
  Sender: FDA-Public Use
  Company Number: None

PATIENT
  Age: 49 Year
  Sex: Female
  Weight: 73.8 kg

DRUGS (9)
  1. VITAMIN D [Concomitant]
     Active Substance: CHOLECALCIFEROL
  2. PSEUDOEPHERINE [Concomitant]
  3. DULOXETINE. [Concomitant]
     Active Substance: DULOXETINE
  4. CABIDOPA/LEVODOPA [Concomitant]
  5. NORTRIPTYLINE [Concomitant]
     Active Substance: NORTRIPTYLINE
  6. METHOCARBAMOL. [Suspect]
     Active Substance: METHOCARBAMOL
     Indication: BACK PAIN
     Route: 048
  7. ZOLMITRIPTAN. [Concomitant]
     Active Substance: ZOLMITRIPTAN
  8. LYRICA [Concomitant]
     Active Substance: PREGABALIN
  9. TOPIRAMATE. [Concomitant]
     Active Substance: TOPIRAMATE

REACTIONS (6)
  - Angioedema [None]
  - Documented hypersensitivity to administered product [None]
  - Lip swelling [None]
  - Urticaria [None]
  - Pruritus [None]
  - Hypersensitivity [None]

NARRATIVE: CASE EVENT DATE: 20160907
